FAERS Safety Report 8094807-X (Version None)
Quarter: 2012Q1

REPORT INFORMATION
  Report Type: 
  Country: None (occurrence: None)
  Receive Date: 20120129
  Receipt Date: 20111211
  Transmission Date: 20120608
  Serious: No
  Sender: FDA-Public Use
  Company Number: US-ABBOTT-11P-163-0882582-00

PATIENT
  Age: 56 Year
  Sex: Male

DRUGS (10)
  1. EFFEXOR XR [Concomitant]
     Indication: PRODUCT USED FOR UNKNOWN INDICATION
     Dosage: 3 DAILY
  2. TRAZODONE HCL [Concomitant]
     Indication: PRODUCT USED FOR UNKNOWN INDICATION
     Dosage: 3-4 AT BEDTIME
  3. HUMIRA [Suspect]
     Indication: CROHN'S DISEASE
     Dosage: INCREASED DOSE FROM PREVIOUS UNK DOSAGE
  4. HUMIRA [Suspect]
     Dosage: FOR 3 WEEKS
  5. WELLBUTRIN [Concomitant]
     Indication: PRODUCT USED FOR UNKNOWN INDICATION
     Dosage: 2 IN THE MORNING, 1 IN THE EVENING
  6. ACETAMINOPHEN [Concomitant]
     Indication: PRODUCT USED FOR UNKNOWN INDICATION
     Dosage: 2 AT BEDTIME PRN
  7. PANTOPRAZOLE [Concomitant]
     Indication: PRODUCT USED FOR UNKNOWN INDICATION
     Dosage: AT BEDTIME
  8. HUMIRA [Suspect]
  9. ONDANSETRON HCL [Concomitant]
     Indication: PRODUCT USED FOR UNKNOWN INDICATION
     Dosage: AT BEDTIME
  10. ULTRAM [Concomitant]
     Indication: PRODUCT USED FOR UNKNOWN INDICATION
     Dosage: 1-2 DAILY PRN

REACTIONS (12)
  - NAUSEA [None]
  - HEADACHE [None]
  - DRUG INEFFECTIVE [None]
  - FATIGUE [None]
  - HYPERTENSION [None]
  - MALAISE [None]
  - DECREASED APPETITE [None]
  - CHILLS [None]
  - ASTHENIA [None]
  - PAIN [None]
  - PYREXIA [None]
  - HYPERHIDROSIS [None]
